FAERS Safety Report 21821777 (Version 1)
Quarter: 2023Q1

REPORT INFORMATION
  Report Type: Spontaneous
  Country: JP (occurrence: JP)
  Receive Date: 20230105
  Receipt Date: 20230105
  Transmission Date: 20230418
  Serious: Yes (Death, Hospitalization, Other)
  Sender: FDA-Public Use
  Company Number: JP-CELLTRION INC.-2022JP021622

PATIENT

DRUGS (1)
  1. BEVACIZUMAB [Suspect]
     Active Substance: BEVACIZUMAB
     Indication: Ovarian cancer stage III

REACTIONS (6)
  - Condition aggravated [Fatal]
  - Oesophageal perforation [Unknown]
  - Necrosis [Unknown]
  - Mediastinal abscess [Unknown]
  - Extradural abscess [Unknown]
  - Infective spondylitis [Unknown]
